FAERS Safety Report 6967764-4 (Version None)
Quarter: 2010Q3

REPORT INFORMATION
  Report Type: 
  Country: None (occurrence: None)
  Receive Date: 20100907
  Receipt Date: 20100826
  Transmission Date: 20110219
  Serious: Yes (Other)
  Sender: FDA-Public Use
  Company Number: JP-PFIZER INC-2010111687

PATIENT
  Age: 62 Year
  Sex: Male
  Weight: 62 kg

DRUGS (6)
  1. CAMPTOSAR [Suspect]
     Indication: COLORECTAL CANCER
     Dosage: 244.5 MG, (150 MG/M2)
     Route: 041
     Dates: start: 20100316, end: 20100528
  2. CALCIUM LEVOFOLINATE [Concomitant]
     Indication: COLORECTAL CANCER
     Dosage: 326 MG, (200 MG/M2)
     Route: 041
     Dates: start: 20100316, end: 20100528
  3. FLUOROURACIL [Concomitant]
     Indication: COLORECTAL CANCER
     Dosage: 652 MG, (400 MG/M2)
     Route: 040
     Dates: start: 20100316, end: 20100528
  4. FLUOROURACIL [Concomitant]
     Dosage: 3912 MG, (2400 MG/M2)
     Route: 041
     Dates: start: 20100316, end: 20100528
  5. ERBITUX [Concomitant]
     Indication: COLORECTAL CANCER
     Dosage: 652 MG, (400 MG/M2)
     Route: 041
     Dates: start: 20100316, end: 20100316
  6. ERBITUX [Concomitant]
     Dosage: 407.5 MG (250 MG/M2)
     Route: 041
     Dates: start: 20100323, end: 20100604

REACTIONS (1)
  - NEUROPATHY PERIPHERAL [None]
